FAERS Safety Report 10072728 (Version 3)
Quarter: 2014Q2

REPORT INFORMATION
  Report Type: Spontaneous
  Country: US (occurrence: US)
  Receive Date: 20140411
  Receipt Date: 20140421
  Transmission Date: 20141212
  Serious: No
  Sender: FDA-Public Use
  Company Number: US-PFIZER INC-2013307824

PATIENT
  Age: 45 Year
  Sex: Female
  Weight: 90.7 kg

DRUGS (8)
  1. LYRICA [Suspect]
     Indication: DIABETIC NEUROPATHY
     Dosage: 75 MG, 2X/DAY
     Route: 048
     Dates: start: 201312, end: 201403
  2. METFORMIN [Concomitant]
     Indication: DIABETES MELLITUS
     Dosage: 1000 MG, 2X/DAY
  3. GLYBURIDE [Concomitant]
     Indication: DIABETES MELLITUS
     Dosage: 20 MG, 2X/DAY
  4. CA+ + D [Concomitant]
     Dosage: UNK
  5. MAGNESIUM [Concomitant]
     Dosage: UNK
  6. HYZAAR [Concomitant]
     Dosage: UNK
  7. BUMEX [Concomitant]
     Dosage: UNK
  8. OMEGA 3 OIL [Concomitant]
     Dosage: UNK

REACTIONS (4)
  - Muscle spasms [Not Recovered/Not Resolved]
  - Pain [Not Recovered/Not Resolved]
  - Insomnia [Unknown]
  - Irritability [Unknown]
